FAERS Safety Report 7782218-3 (Version None)
Quarter: 2011Q3

REPORT INFORMATION
  Report Type: 
  Country: None (occurrence: None)
  Receive Date: 20110927
  Receipt Date: 20110921
  Transmission Date: 20111222
  Serious: Yes (Hospitalization, Other)
  Sender: FDA-Public Use
  Company Number: FR-PFIZER INC-2011225489

PATIENT
  Age: 26 Year
  Sex: Male

DRUGS (3)
  1. XANAX [Suspect]
     Dosage: 2 BLISTER PACKS, SINGLE INTAKE
     Route: 048
  2. ACETAMINOPHEN [Suspect]
     Dosage: 6 G, SINGLE
     Route: 048
  3. ACETAMINOPHEN W/ PROPOXYPHENE HCL [Suspect]
     Dosage: 8 G, SINGLE
     Route: 048

REACTIONS (3)
  - SOMNOLENCE [None]
  - SUICIDE ATTEMPT [None]
  - DRUG LEVEL INCREASED [None]
